FAERS Safety Report 24879843 (Version 1)
Quarter: 2025Q1

REPORT INFORMATION
  Report Type: Spontaneous
  Country: FR (occurrence: FR)
  Receive Date: 20250123
  Receipt Date: 20250123
  Transmission Date: 20250408
  Serious: Yes (Hospitalization)
  Sender: FRESENIUS KABI
  Company Number: None

PATIENT
  Age: 82 Year
  Sex: Male
  Weight: 66 kg

DRUGS (4)
  1. FLUCONAZOLE [Suspect]
     Active Substance: FLUCONAZOLE
     Indication: Arthritis infective
     Dates: start: 20241004, end: 20241203
  2. CLINDAMYCIN HYDROCHLORIDE [Suspect]
     Active Substance: CLINDAMYCIN HYDROCHLORIDE
     Indication: Arthritis infective
     Route: 048
     Dates: start: 20240905, end: 20241203
  3. GELTIM LP 1 mg/g, ophthalmic gel in single-dose container [TIMOLOL MAL [Concomitant]
     Indication: Product used for unknown indication
  4. XYDALBA 500 mg, powder for solution for diluted infusion [Concomitant]
     Indication: Product used for unknown indication

REACTIONS (3)
  - Torsade de pointes [Recovered/Resolved]
  - Hypokalaemia [Recovered/Resolved]
  - Diarrhoea [Recovered/Resolved]

NARRATIVE: CASE EVENT DATE: 20241202
